FAERS Safety Report 6492401-5 (Version None)
Quarter: 2009Q4

REPORT INFORMATION
  Report Type: 
  Country: None (occurrence: None)
  Receive Date: 20091214
  Receipt Date: 20091202
  Transmission Date: 20100525
  Serious: Yes (Hospitalization)
  Sender: FDA-Public Use
  Company Number: FR-ROCHE-672398

PATIENT
  Sex: Female

DRUGS (4)
  1. TAMIFLU [Suspect]
     Indication: INFLUENZA
     Dosage: DOSE REPORTED: 150 MG, 1 CAPSULE ON 26 SEP 09, 2 CAPSULE ON 27 SEP 09, 1 CAPSULE ON 28 SEP 09
     Route: 048
     Dates: start: 20090926, end: 20090928
  2. DOLIPRANE [Suspect]
     Indication: INFLUENZA
     Dosage: TAKEN 2-3 TIMES
     Route: 048
     Dates: start: 20090926, end: 20090927
  3. ADVIL [Suspect]
     Indication: INFLUENZA
     Dosage: TAKEN 2-3 TIMES
     Route: 048
     Dates: start: 20090926, end: 20090927
  4. BIOCALYPTOL [Suspect]
     Indication: INFLUENZA
     Dosage: DOSE: ^LITTLE^
     Route: 048
     Dates: start: 20090926, end: 20090927

REACTIONS (4)
  - DIPLEGIA [None]
  - EPILEPSY [None]
  - PARAESTHESIA [None]
  - SOMNOLENCE [None]
